FAERS Safety Report 8855127 (Version 3)
Quarter: 2012Q4

REPORT INFORMATION
  Report Type: 
  Country: JP (occurrence: JP)
  Receive Date: 20121023
  Receipt Date: 20121128
  Transmission Date: 20130627
  Serious: Yes (Hospitalization)
  Sender: FDA-Public Use
  Company Number: JP-ASTRAZENECA-2012SE75390

PATIENT
  Age: 31 Year
  Sex: Female

DRUGS (2)
  1. SYMBICORT TURBUHALER [Suspect]
     Indication: ASTHMA
     Route: 055
     Dates: start: 20120827, end: 20120925
  2. PULMICORT TURBUHALER [Suspect]
     Indication: ASTHMA
     Route: 055
     Dates: start: 20090803, end: 20120827

REACTIONS (1)
  - Liver disorder [Recovered/Resolved]
